FAERS Safety Report 7970709 (Version 2)
Quarter: 2013Q4

REPORT INFORMATION
  Report Type: Spontaneous
  Country: US (occurrence: US)
  Receive Date: 20110602
  Receipt Date: 20131125
  Transmission Date: 20140711
  Serious: Yes (Life-Threatening, Hospitalization, Other)
  Sender: FDA-Public Use
  Company Number: US-BAYER-2011-047085

PATIENT
  Sex: Female

DRUGS (6)
  1. YAZ [Suspect]
  2. YASMIN [Suspect]
  3. OCELLA [Suspect]
  4. HYOSCYAMINE SULFATE [Concomitant]
     Dosage: 0.125 MG, UNK
     Dates: start: 20051125
  5. NEXIUM [Concomitant]
     Dosage: 40 MG, UNK
     Dates: start: 20051218
  6. HYDROCODONE W/APAP [Concomitant]
     Dosage: UNK
     Dates: start: 20051218

REACTIONS (9)
  - Internal injury [None]
  - Organ failure [None]
  - Gallbladder non-functioning [None]
  - Injury [None]
  - Pain [None]
  - General physical health deterioration [None]
  - Anxiety [None]
  - Anhedonia [None]
  - Cholecystitis chronic [None]
